FAERS Safety Report 4808682-7 (Version None)
Quarter: 2005Q4

REPORT INFORMATION
  Report Type: 
  Country: None (occurrence: None)
  Receive Date: 20051021
  Receipt Date: 20030515
  Transmission Date: 20060501
  Serious: No
  Sender: FDA-Public Use
  Company Number: DE_030511296

PATIENT
  Sex: Female

DRUGS (3)
  1. ZYPREXA [Suspect]
     Dosage: 10 MG/DAY
  2. VALPROATE SODIUM [Concomitant]
  3. LITHIUM [Concomitant]

REACTIONS (2)
  - LYMPHOCYTOSIS [None]
  - NEUTROPENIA [None]
